FAERS Safety Report 7205835-8 (Version None)
Quarter: 2010Q4

REPORT INFORMATION
  Report Type: 
  Country: None (occurrence: None)
  Receive Date: 20101231
  Receipt Date: 20101221
  Transmission Date: 20110411
  Serious: Yes (Other)
  Sender: FDA-Public Use
  Company Number: US-PFIZER INC-2010177165

PATIENT
  Sex: Male

DRUGS (1)
  1. PRISTIQ [Suspect]

REACTIONS (1)
  - LUNG NEOPLASM MALIGNANT [None]
